FAERS Safety Report 22101438 (Version 1)
Quarter: 2023Q1

REPORT INFORMATION
  Report Type: Spontaneous
  Country: US (occurrence: US)
  Receive Date: 20230316
  Receipt Date: 20230316
  Transmission Date: 20230417
  Serious: Yes (Death, Hospitalization)
  Sender: FDA-Public Use
  Company Number: US-TEVA-2023-US-2865051

PATIENT
  Age: 51 Year
  Sex: Male

DRUGS (9)
  1. EPINEPHRINE [Suspect]
     Active Substance: EPINEPHRINE
     Indication: Toxicity to various agents
     Route: 065
  2. BUPROPION [Suspect]
     Active Substance: BUPROPION
     Indication: Product used for unknown indication
     Route: 065
  3. METOPROLOL [Suspect]
     Active Substance: METOPROLOL
     Indication: Product used for unknown indication
     Route: 065
  4. PROPOFOL [Suspect]
     Active Substance: PROPOFOL
     Indication: Toxicity to various agents
     Route: 065
  5. NOREPINEPHRINE [Suspect]
     Active Substance: NOREPINEPHRINE
     Indication: Toxicity to various agents
     Route: 065
  6. AMLODIPINE [Suspect]
     Active Substance: AMLODIPINE BESYLATE
     Indication: Product used for unknown indication
     Route: 065
  7. INSULIN NOS [Suspect]
     Active Substance: INSULIN NOS
     Indication: Toxicity to various agents
     Dosage: HIGH DOSE INSULIN EUGLYCEMIC THERAPY
     Route: 065
  8. SODIUM BICARBONATE [Suspect]
     Active Substance: SODIUM BICARBONATE
     Indication: Toxicity to various agents
     Route: 065
  9. DEXTROSE [Suspect]
     Active Substance: DEXTROSE
     Indication: Toxicity to various agents
     Dosage: }5%
     Route: 065

REACTIONS (11)
  - Toxicity to various agents [Fatal]
  - Hypotension [Fatal]
  - Bradycardia [Fatal]
  - Acute lung injury [Fatal]
  - Coma [Fatal]
  - Depressed level of consciousness [Fatal]
  - Acute respiratory distress syndrome [Fatal]
  - Acute kidney injury [Fatal]
  - Respiratory depression [Fatal]
  - Cardiac arrest [Fatal]
  - Drug ineffective [Fatal]
